FAERS Safety Report 19656931 (Version 1)
Quarter: 2021Q3

REPORT INFORMATION
  Report Type: Spontaneous
  Country: US (occurrence: US)
  Receive Date: 20210804
  Receipt Date: 20210804
  Transmission Date: 20211014
  Serious: Yes (Hospitalization)
  Sender: FDA-Public Use
  Company Number: None

PATIENT
  Age: 81 Year
  Sex: Male
  Weight: 56.7 kg

DRUGS (9)
  1. CAPECITABINE 500 MG TABS [Suspect]
     Active Substance: CAPECITABINE
     Indication: GASTRIC CANCER
     Dosage: ?          OTHER FREQUENCY:BID X 14/21 DAYS;?
     Route: 048
     Dates: start: 20210427, end: 20210720
  2. CARVEDILOL 6.25MG [Concomitant]
     Active Substance: CARVEDILOL
  3. MIRTAZAPINE 15MG [Concomitant]
     Active Substance: MIRTAZAPINE
  4. FAMOTIDINE 40MG [Concomitant]
     Active Substance: FAMOTIDINE
  5. PANTOPRAZOLE 40MG [Concomitant]
     Active Substance: PANTOPRAZOLE SODIUM
  6. FLOMAX 0.4MG [Concomitant]
  7. AMLODIPINE [Concomitant]
     Active Substance: AMLODIPINE BESYLATE
  8. CAPECITABINE 150MG TABLETS [Suspect]
     Active Substance: CAPECITABINE
     Indication: GASTRIC CANCER
     Dosage: ?          OTHER FREQUENCY:BID X 14/21 DAYS;?
     Route: 048
     Dates: start: 20210427, end: 20210720
  9. AMIODARONE 200MG [Concomitant]
     Active Substance: AMIODARONE

REACTIONS (4)
  - Gallbladder disorder [None]
  - Abscess [None]
  - Infection [None]
  - Emphysema [None]

NARRATIVE: CASE EVENT DATE: 20210804
